FAERS Safety Report 8311668-1 (Version None)
Quarter: 2012Q2

REPORT INFORMATION
  Report Type: 
  Country: None (occurrence: None)
  Receive Date: 20120425
  Receipt Date: 20120418
  Transmission Date: 20120825
  Serious: Yes (Hospitalization)
  Sender: FDA-Public Use
  Company Number: US-CELGENEUS-163-20785-12041981

PATIENT
  Sex: Female

DRUGS (5)
  1. PROMETHAZINE HCL [Concomitant]
     Route: 065
  2. THALOMID [Suspect]
     Dosage: 50 MILLIGRAM
     Route: 048
     Dates: start: 20110501
  3. DEXAMETHASONE [Concomitant]
     Route: 065
  4. AMLODIPINE BESY-BENAZEPRIL HCL [Concomitant]
     Route: 065
  5. PHOSLO [Concomitant]
     Route: 065

REACTIONS (1)
  - GALLBLADDER DISORDER [None]
